FAERS Safety Report 21937940 (Version 6)
Quarter: 2023Q4

REPORT INFORMATION
  Report Type: Spontaneous
  Country: US (occurrence: US)
  Receive Date: 20230201
  Receipt Date: 20231211
  Transmission Date: 20240109
  Serious: No
  Sender: FDA-Public Use
  Company Number: US-BRISTOL-MYERS SQUIBB COMPANY-2023-014896

PATIENT
  Age: 67 Year
  Sex: Female

DRUGS (4)
  1. ORENCIA [Suspect]
     Active Substance: ABATACEPT
     Indication: Rheumatoid arthritis
     Dosage: 250 MG/VL
     Route: 042
     Dates: start: 202208
  2. ORENCIA [Suspect]
     Active Substance: ABATACEPT
     Route: 042
     Dates: start: 202207
  3. ORENCIA [Suspect]
     Active Substance: ABATACEPT
     Dosage: 250 MG/VL
     Route: 042
     Dates: start: 202208
  4. ORENCIA [Suspect]
     Active Substance: ABATACEPT
     Route: 042
     Dates: start: 202207

REACTIONS (4)
  - Weight increased [Unknown]
  - Oral herpes [Unknown]
  - Tongue eruption [Unknown]
  - Rheumatoid arthritis [Unknown]
